FAERS Safety Report 6393062-6 (Version None)
Quarter: 2009Q4

REPORT INFORMATION
  Report Type: 
  Country: None (occurrence: None)
  Receive Date: 20091008
  Receipt Date: 20090930
  Transmission Date: 20100525
  Serious: Yes (Other)
  Sender: FDA-Public Use
  Company Number: BR-ROCHE-631435

PATIENT
  Sex: Female
  Weight: 55 kg

DRUGS (2)
  1. ROACUTAN [Suspect]
     Indication: ACNE
     Route: 048
     Dates: start: 20090101, end: 20090501
  2. DIANE [Concomitant]
     Indication: CONTRACEPTION
     Route: 048

REACTIONS (1)
  - BENIGN HEPATIC NEOPLASM [None]
